FAERS Safety Report 7352653-6 (Version None)
Quarter: 2011Q1

REPORT INFORMATION
  Report Type: 
  Country: None (occurrence: None)
  Receive Date: 20110315
  Receipt Date: 20110305
  Transmission Date: 20110831
  Serious: Yes (Other)
  Sender: FDA-Public Use
  Company Number: FR-MPIJNJ-2011-00947

PATIENT

DRUGS (1)
  1. VELCADE [Suspect]
     Indication: PRIMARY AMYLOIDOSIS

REACTIONS (2)
  - HYPOTHERMIA [None]
  - NEUROPATHY PERIPHERAL [None]
